FAERS Safety Report 18644039 (Version 8)
Quarter: 2021Q2

REPORT INFORMATION
  Report Type: Report from Study
  Country: BR (occurrence: BR)
  Receive Date: 20201221
  Receipt Date: 20210422
  Transmission Date: 20210717
  Serious: Yes (Life-Threatening, Other)
  Sender: FDA-Public Use
  Company Number: BR-GILEAD-2020-0509899

PATIENT
  Age: 58 Year
  Sex: Male
  Weight: 84 kg

DRUGS (50)
  1. TOCILIZUMAB. [Suspect]
     Active Substance: TOCILIZUMAB
     Indication: COVID-19 PNEUMONIA
     Dosage: 8 MG/KG, ONCE; MOST RECENT DOSE OF BLINDED TOCI PRIOR TO AE ONSET 06/DEC/2020 AT 09:28AM TO 10:28AM
     Route: 042
     Dates: start: 20201205
  2. OXYGEN. [Concomitant]
     Active Substance: OXYGEN
     Dosage: 40 UNK
     Route: 007
     Dates: start: 20201211
  3. OXYGEN. [Concomitant]
     Active Substance: OXYGEN
     Dosage: TRANSTRACHEAL
     Route: 007
     Dates: start: 20201220
  4. OXYGEN. [Concomitant]
     Active Substance: OXYGEN
     Dosage: 35 UNK
     Route: 007
     Dates: start: 20201218
  5. ROCURONIO [Concomitant]
     Active Substance: ROCURONIUM BROMIDE
     Indication: COVID-19
     Dates: start: 20201205
  6. HALDOL [Concomitant]
     Active Substance: HALOPERIDOL
     Indication: DELIRIUM
     Dosage: UNK
     Dates: start: 20201219, end: 20210102
  7. OXYGEN. [Concomitant]
     Active Substance: OXYGEN
     Dosage: 40 UNK
     Route: 007
     Dates: start: 20201210
  8. OXYGEN. [Concomitant]
     Active Substance: OXYGEN
     Dosage: 40 UNK
     Route: 007
     Dates: start: 20201210
  9. OXYGEN. [Concomitant]
     Active Substance: OXYGEN
     Dosage: 35 UNK
     Route: 007
     Dates: start: 20201220
  10. OXYGEN. [Concomitant]
     Active Substance: OXYGEN
     Dosage: 35 UNK
     Route: 007
     Dates: start: 20201219
  11. NORADRENALINE [NOREPINEPHRINE] [Concomitant]
     Active Substance: NOREPINEPHRINE
     Dosage: 20 ML
     Dates: start: 20201205
  12. HALDOL [Concomitant]
     Active Substance: HALOPERIDOL
     Indication: DELIRIUM
     Dosage: 5 MG
     Dates: start: 20201219, end: 20210102
  13. OXYGEN. [Concomitant]
     Active Substance: OXYGEN
     Dosage: 35 UNK
     Route: 007
     Dates: start: 20201216
  14. OXYGEN. [Concomitant]
     Active Substance: OXYGEN
     Dosage: 35 UNK
     Route: 007
     Dates: start: 20201217
  15. OXYGEN. [Concomitant]
     Active Substance: OXYGEN
     Dosage: 30 UNK
     Route: 007
     Dates: start: 20201212
  16. OXYGEN. [Concomitant]
     Active Substance: OXYGEN
     Dosage: TRANSTRACHEAL
     Route: 007
     Dates: start: 20201219
  17. OXYGEN. [Concomitant]
     Active Substance: OXYGEN
     Dosage: TRANSTRACHEAL
     Dates: start: 20201221
  18. OXYGEN. [Concomitant]
     Active Substance: OXYGEN
     Dosage: 30 %
     Route: 007
     Dates: start: 20201221
  19. OXYGEN. [Concomitant]
     Active Substance: OXYGEN
     Dosage: 50 UNK
     Route: 007
     Dates: start: 20201205
  20. OXYGEN. [Concomitant]
     Active Substance: OXYGEN
     Dosage: 35 UNK
     Route: 007
     Dates: start: 20201218
  21. DEXAMETHASONE. [Concomitant]
     Active Substance: DEXAMETHASONE
     Indication: COVID-19
     Dates: start: 20201206
  22. REMDESIVIR. [Suspect]
     Active Substance: REMDESIVIR
     Dosage: 100 ML, MOST RECENT DOSE OF RDV PRIOR TO AE ONSET AT 12:38 PM TO 1:38 PM
     Route: 042
     Dates: start: 20201210
  23. OXYGEN. [Concomitant]
     Active Substance: OXYGEN
     Dosage: 35 UNK
     Route: 007
     Dates: start: 20201215
  24. OXYGEN. [Concomitant]
     Active Substance: OXYGEN
     Dosage: 70 UNK
     Route: 007
     Dates: start: 20201205
  25. OXYGEN. [Concomitant]
     Active Substance: OXYGEN
     Route: 007
     Dates: start: 20201205
  26. OXYGEN. [Concomitant]
     Active Substance: OXYGEN
     Dosage: 30 UNK
     Route: 007
     Dates: start: 20201220
  27. NORADRENALINE [NOREPINEPHRINE] [Concomitant]
     Active Substance: NOREPINEPHRINE
     Dates: start: 20201210
  28. OXYGEN. [Concomitant]
     Active Substance: OXYGEN
     Dosage: 30 %
     Route: 007
     Dates: start: 20201212
  29. OXYGEN. [Concomitant]
     Active Substance: OXYGEN
     Dosage: 30 UNK
     Route: 007
     Dates: start: 20201213
  30. OXYGEN. [Concomitant]
     Active Substance: OXYGEN
     Dosage: TRANSTRACHEAL
     Route: 007
     Dates: start: 20201219
  31. OXYGEN. [Concomitant]
     Active Substance: OXYGEN
     Dosage: 35 UNK
     Route: 007
     Dates: start: 20201221
  32. ENOXAPARINA [Concomitant]
     Active Substance: ENOXAPARIN
     Dates: start: 20201206
  33. OXYGEN. [Concomitant]
     Active Substance: OXYGEN
     Dosage: 35 UNK
     Route: 007
     Dates: start: 20201208
  34. OXYGEN. [Concomitant]
     Active Substance: OXYGEN
     Dosage: 30 UNK
     Route: 007
     Dates: start: 20201214
  35. OXYGEN. [Concomitant]
     Active Substance: OXYGEN
     Dosage: 50 UNK
     Route: 007
     Dates: start: 20201206
  36. OXYGEN. [Concomitant]
     Active Substance: OXYGEN
     Dosage: TRANSTRACHEAL
     Dates: start: 20201220
  37. OXYGEN. [Concomitant]
     Active Substance: OXYGEN
     Dosage: 35 %
     Route: 007
     Dates: start: 20201218
  38. LIDOCAINE. [Concomitant]
     Active Substance: LIDOCAINE
     Dates: start: 20201205
  39. NOREPINEPHRINE. [Concomitant]
     Active Substance: NOREPINEPHRINE
     Dosage: 20 ML
     Dates: start: 20201210
  40. OXYGEN. [Concomitant]
     Active Substance: OXYGEN
     Dosage: 15 L/MIN
     Route: 055
     Dates: start: 20201205
  41. OXYGEN. [Concomitant]
     Active Substance: OXYGEN
     Dosage: 40 UNK
     Route: 007
     Dates: start: 20201207
  42. OXYGEN. [Concomitant]
     Active Substance: OXYGEN
     Dosage: 40 UNK
     Route: 007
     Dates: start: 20201209
  43. OXYGEN. [Concomitant]
     Active Substance: OXYGEN
     Dosage: 30 UNK
     Route: 007
     Dates: start: 20201221
  44. CEFTRIAXONE. [Concomitant]
     Active Substance: CEFTRIAXONE
     Indication: BACTERIAL INFECTION
     Dates: start: 20201206
  45. SUCCINIL [Concomitant]
     Indication: ENDOTRACHEAL INTUBATION
     Dates: start: 20201205
  46. REMDESIVIR. [Suspect]
     Active Substance: REMDESIVIR
     Indication: COVID-19 PNEUMONIA
     Dosage: 100 ML, QD
     Route: 042
     Dates: start: 20201205
  47. OXYGEN. [Concomitant]
     Active Substance: OXYGEN
     Dosage: 40 UNK
     Route: 007
     Dates: start: 20201209
  48. OXYGEN. [Concomitant]
     Active Substance: OXYGEN
     Route: 007
     Dates: start: 20201222
  49. OXYGEN. [Concomitant]
     Active Substance: OXYGEN
     Dosage: UNK
     Dates: start: 20201223
  50. OXYGEN. [Concomitant]
     Active Substance: OXYGEN
     Dosage: 25 UNK
     Route: 007
     Dates: start: 20201219

REACTIONS (1)
  - Pneumonia [Recovered/Resolved]

NARRATIVE: CASE EVENT DATE: 20201210
